FAERS Safety Report 5344081-X (Version None)
Quarter: 2007Q2

REPORT INFORMATION
  Report Type: 
  Country: None (occurrence: None)
  Receive Date: 20070604
  Receipt Date: 20070525
  Transmission Date: 20071010
  Serious: Yes (Other)
  Sender: FDA-Public Use
  Company Number: B0469993A

PATIENT
  Age: 75 Year
  Sex: Male
  Weight: 72 kg

DRUGS (10)
  1. AVANDIA [Suspect]
     Indication: DRUG USE FOR UNKNOWN INDICATION
     Route: 048
     Dates: start: 20050601
  2. METFORMIN HYDROCHLORIDE [Concomitant]
     Dosage: 500MG TWICE PER DAY
     Route: 065
  3. BENDROFLUMETHIAZIDE [Concomitant]
     Dosage: 2.5MG IN THE MORNING
     Route: 065
  4. DOXAZOSIN MESYLATE [Concomitant]
     Dosage: 8MG PER DAY
     Route: 048
  5. SIMVASTATIN [Concomitant]
     Dosage: 20MG AT NIGHT
     Route: 065
  6. ATENOLOL [Concomitant]
     Dosage: 100MG PER DAY
     Route: 065
  7. ASPIRIN [Concomitant]
     Dosage: 75MG PER DAY
     Route: 065
  8. RAMIPRIL [Concomitant]
     Dosage: 10MG PER DAY
     Route: 065
  9. ADIZEM-XL [Concomitant]
     Dosage: 240MG PER DAY
     Route: 065
  10. RANITIDINE [Concomitant]
     Dosage: 150MG PER DAY
     Route: 065

REACTIONS (2)
  - PULMONARY OEDEMA [None]
  - RALES [None]
